FAERS Safety Report 9859690 (Version 1)
Quarter: 2014Q1

REPORT INFORMATION
  Report Type: Spontaneous
  Country: BE (occurrence: BE)
  Receive Date: 20140131
  Receipt Date: 20140131
  Transmission Date: 20141002
  Serious: Yes (Disabling)
  Sender: FDA-Public Use
  Company Number: BE-GLAXOSMITHKLINE-B0955569A

PATIENT
  Age: 81 Year
  Sex: Male
  Weight: 65 kg

DRUGS (2)
  1. COMBODART [Suspect]
     Indication: NOCTURIA
     Route: 048
     Dates: start: 20130306, end: 20130822
  2. DESMOPRESSIN [Suspect]
     Indication: NOCTURIA
     Route: 048
     Dates: start: 20130806, end: 20130822

REACTIONS (4)
  - Orthostatic hypotension [Recovered/Resolved]
  - Drug interaction [Unknown]
  - Hyponatraemia [Unknown]
  - Fall [Unknown]
